FAERS Safety Report 5114871-7 (Version None)
Quarter: 2006Q3

REPORT INFORMATION
  Report Type: 
  Country: None (occurrence: None)
  Receive Date: 20060921
  Receipt Date: 20060905
  Transmission Date: 20061208
  Serious: Yes (Disabling, Other)
  Sender: FDA-Public Use
  Company Number: DSA_28631_2006

PATIENT
  Age: 62 Year
  Sex: Male

DRUGS (1)
  1. ENALAPRIL MALEATE [Suspect]
     Dosage: 20 MG QD PO
     Route: 048
     Dates: start: 19970101

REACTIONS (2)
  - RETINOPATHY [None]
  - VISION BLURRED [None]
